FAERS Safety Report 5078030-9 (Version None)
Quarter: 2006Q3

REPORT INFORMATION
  Report Type: 
  Country: None (occurrence: None)
  Receive Date: 20060811
  Receipt Date: 20060516
  Transmission Date: 20061208
  Serious: Yes (Hospitalization, Other)
  Sender: FDA-Public Use
  Company Number: US-BAYER-200613306BWH

PATIENT
  Age: 66 Year
  Sex: Male
  Weight: 92 kg

DRUGS (10)
  1. AVELOX [Suspect]
     Indication: BRONCHITIS
     Dosage: TOTAL DAILY DOSE: 400 MG  UNIT DOSE: 400 MG
     Route: 048
     Dates: start: 20060413, end: 20060416
  2. AVELOX IV [Suspect]
     Indication: BRONCHITIS
     Dosage: TOTAL DAILY DOSE: 400 MG  UNIT DOSE: 400 MG
     Route: 042
     Dates: start: 20060412, end: 20060412
  3. WARFARIN SODIUM [Concomitant]
     Dosage: TOTAL DAILY DOSE: 5 MG
     Route: 048
     Dates: start: 20060413, end: 20060414
  4. WARFARIN SODIUM [Concomitant]
     Dosage: TOTAL DAILY DOSE: 7.5 MG
     Route: 048
     Dates: start: 20060415, end: 20060416
  5. WARFARIN SODIUM [Concomitant]
     Dosage: TOTAL DAILY DOSE: 2.5 MG
     Route: 048
     Dates: start: 20060415
  6. ASPIRIN [Concomitant]
     Dosage: TOTAL DAILY DOSE: 81 MG  UNIT DOSE: 81 MG
     Route: 048
  7. COMBIVENT [Concomitant]
  8. ADVAIR DISKUS 100/50 [Concomitant]
     Route: 048
  9. SPIRIVA [Concomitant]
  10. LOVENOX [Concomitant]
     Dosage: TOTAL DAILY DOSE: 180 MG
     Route: 042

REACTIONS (3)
  - HEPATIC CIRRHOSIS [None]
  - HEPATIC FAILURE [None]
  - HEPATOTOXICITY [None]
